FAERS Safety Report 9757571 (Version 2)
Quarter: 2014Q1

REPORT INFORMATION
  Report Type: Spontaneous
  Country: US (occurrence: US)
  Receive Date: 20131216
  Receipt Date: 20140129
  Transmission Date: 20141002
  Serious: No
  Sender: FDA-Public Use
  Company Number: US-009507513-1312USA003634

PATIENT
  Sex: Female

DRUGS (1)
  1. ASMANEX TWISTHALER [Suspect]
     Dosage: 220 MCG 2 PUFFS TWICE A DAY
     Route: 055
     Dates: start: 20131123

REACTIONS (4)
  - Cough [Not Recovered/Not Resolved]
  - Dyspnoea [Not Recovered/Not Resolved]
  - Drug dose omission [Unknown]
  - Product quality issue [Unknown]
